FAERS Safety Report 21533431 (Version 1)
Quarter: 2022Q4

REPORT INFORMATION
  Report Type: Spontaneous
  Country: JP (occurrence: None)
  Receive Date: 20221101
  Receipt Date: 20221101
  Transmission Date: 20230113
  Serious: Yes (Other)
  Sender: FDA-Public Use
  Company Number: JP-Orion Corporation ORION PHARMA-ENTC2022-0205

PATIENT
  Age: 8 Decade
  Sex: Male

DRUGS (1)
  1. STALEVO [Suspect]
     Active Substance: CARBIDOPA\ENTACAPONE\LEVODOPA
     Indication: Parkinson^s disease
     Dosage: STRENGTH: LEVODOPA 100 MG/CARBIDOPA HYDRATE 10 MG/ENTACAPONE 100 MG
     Route: 048
     Dates: start: 2017

REACTIONS (1)
  - Parkinson^s disease [Unknown]
